FAERS Safety Report 9057277 (Version 1)
Quarter: 2013Q1

REPORT INFORMATION
  Report Type: Report from Study
  Country: JP (occurrence: JP)
  Receive Date: 20130131
  Receipt Date: 20130131
  Transmission Date: 20140127
  Serious: Yes (Other)
  Sender: FDA-Public Use
  Company Number: JP-GLAXOSMITHKLINE-B0860358A

PATIENT
  Age: 58 None
  Sex: Female

DRUGS (13)
  1. TYKERB [Suspect]
     Indication: BREAST CANCER
     Route: 048
     Dates: start: 20100430, end: 20100601
  2. TYKERB [Suspect]
     Indication: BREAST CANCER
     Route: 048
     Dates: start: 20100617, end: 20110302
  3. XELODA [Suspect]
     Route: 048
     Dates: start: 20100430, end: 20100601
  4. XELODA [Suspect]
     Route: 048
     Dates: start: 20100617, end: 20100721
  5. XELODA [Suspect]
     Route: 048
     Dates: start: 20100729, end: 20110105
  6. XELODA [Suspect]
     Route: 048
     Dates: start: 20110120, end: 20110223
  7. PURSENNID [Suspect]
     Indication: CONSTIPATION
     Route: 048
     Dates: end: 20100608
  8. PREDONINE [Concomitant]
     Indication: ASTHMA
     Route: 048
     Dates: start: 20100530, end: 20100616
  9. THYRADIN S [Concomitant]
     Indication: THYROIDITIS CHRONIC
     Route: 048
  10. MAGLAX [Concomitant]
     Indication: CONSTIPATION
     Route: 048
  11. ZESULAN [Concomitant]
     Indication: ASTHMA
     Route: 048
  12. CLARITH [Concomitant]
     Indication: ASTHMA
     Route: 048
  13. PYDOXAL [Concomitant]
     Indication: PROPHYLAXIS
     Route: 048
     Dates: start: 20100428

REACTIONS (7)
  - Otitis media [Recovered/Resolved]
  - Diarrhoea [Recovered/Resolved]
  - Upper respiratory tract inflammation [Recovered/Resolved]
  - Palmar-plantar erythrodysaesthesia syndrome [Recovering/Resolving]
  - Erythema [Recovered/Resolved]
  - Pruritus [Recovered/Resolved]
  - Asthma [Recovered/Resolved]
